FAERS Safety Report 7770742-9 (Version None)
Quarter: 2011Q3

REPORT INFORMATION
  Report Type: 
  Country: None (occurrence: None)
  Receive Date: 20110922
  Receipt Date: 20110304
  Transmission Date: 20111222
  Serious: No
  Sender: FDA-Public Use
  Company Number: US-ASTRAZENECA-2011SE12185

PATIENT
  Age: 57 Year
  Sex: Female
  Weight: 54.4 kg

DRUGS (6)
  1. SEROQUEL XR [Suspect]
     Route: 048
     Dates: start: 20110220, end: 20110222
  2. SEROQUEL XR [Suspect]
     Route: 048
     Dates: start: 20110301
  3. SEROQUEL XR [Suspect]
     Indication: INJURY
     Route: 048
     Dates: start: 20110128, end: 20110201
  4. SEROQUEL XR [Suspect]
     Route: 048
     Dates: start: 20110220, end: 20110222
  5. SEROQUEL XR [Suspect]
     Indication: ANGER
     Route: 048
     Dates: start: 20110128, end: 20110201
  6. SEROQUEL XR [Suspect]
     Route: 048
     Dates: start: 20110301

REACTIONS (5)
  - BACK PAIN [None]
  - ABNORMAL DREAMS [None]
  - SEDATION [None]
  - WRONG TECHNIQUE IN DRUG USAGE PROCESS [None]
  - MUSCULOSKELETAL STIFFNESS [None]
